FAERS Safety Report 21602826 (Version 2)
Quarter: 2023Q2

REPORT INFORMATION
  Report Type: Report from Study
  Country: US (occurrence: US)
  Receive Date: 20221116
  Receipt Date: 20230414
  Transmission Date: 20230721
  Serious: No
  Sender: FDA-Public Use
  Company Number: US-ABBVIE-4163181

PATIENT
  Sex: Male

DRUGS (1)
  1. HUMIRA [Suspect]
     Active Substance: ADALIMUMAB
     Indication: Rheumatoid arthritis
     Dosage: CITRATE FREE
     Route: 058
     Dates: start: 20220302

REACTIONS (4)
  - Fatigue [Unknown]
  - Arthritis [Not Recovered/Not Resolved]
  - Therapeutic product effect decreased [Unknown]
  - Muscular weakness [Unknown]
